FAERS Safety Report 4589588-8 (Version None)
Quarter: 2005Q1

REPORT INFORMATION
  Report Type: 
  Country: None (occurrence: None)
  Receive Date: 20050223
  Receipt Date: 20050210
  Transmission Date: 20050727
  Serious: Yes (Hospitalization)
  Sender: FDA-Public Use
  Company Number: FR-MERCK-0502FRA00041

PATIENT
  Age: 27 Year
  Sex: Female
  Weight: 55 kg

DRUGS (2)
  1. FOSAMAX [Suspect]
     Indication: OSTEOPENIA
     Route: 048
     Dates: start: 20030310, end: 20040518
  2. DESOGESTREL AND ETHINYL ESTRADIOL [Concomitant]
     Route: 048

REACTIONS (2)
  - GLOMERULONEPHRITIS [None]
  - HAEMATURIA [None]
